FAERS Safety Report 18284622 (Version 2)
Quarter: 2020Q3

REPORT INFORMATION
  Report Type: Spontaneous
  Country: US (occurrence: US)
  Receive Date: 20200918
  Receipt Date: 20200928
  Transmission Date: 20201103
  Serious: Yes (Other)
  Sender: FDA-Public Use
  Company Number: US-RADIUS HEALTH INC.-2020US002781

PATIENT
  Age: 60 Year
  Sex: Female

DRUGS (6)
  1. TYMLOS [Suspect]
     Active Substance: ABALOPARATIDE
     Indication: OSTEOPOROSIS
     Dosage: 80 MCG QD
     Dates: start: 202002
  2. LASIX [Suspect]
     Active Substance: FUROSEMIDE
     Indication: SWELLING
  3. AMLODIPINE [Concomitant]
     Active Substance: AMLODIPINE BESYLATE
     Indication: HYPERTENSION
  4. TYMLOS [Suspect]
     Active Substance: ABALOPARATIDE
     Dosage: 80 MCG, QD
     Dates: start: 202002
  5. CARDIA [Concomitant]
     Active Substance: AJMALINE
     Indication: PRODUCT USED FOR UNKNOWN INDICATION
  6. LIPITOR [Concomitant]
     Active Substance: ATORVASTATIN CALCIUM
     Indication: PRODUCT USED FOR UNKNOWN INDICATION

REACTIONS (9)
  - Blood potassium decreased [Recovering/Resolving]
  - Hypertension [Unknown]
  - Multiple use of single-use product [Unknown]
  - Polyuria [Not Recovered/Not Resolved]
  - Nausea [Not Recovered/Not Resolved]
  - Feeling abnormal [Not Recovered/Not Resolved]
  - Palpitations [Not Recovered/Not Resolved]
  - Localised infection [Unknown]
  - Dizziness [Not Recovered/Not Resolved]

NARRATIVE: CASE EVENT DATE: 20200907
